FAERS Safety Report 23339945 (Version 4)
Quarter: 2024Q1

REPORT INFORMATION
  Report Type: Spontaneous
  Country: US (occurrence: US)
  Receive Date: 20231226
  Receipt Date: 20240102
  Transmission Date: 20240410
  Serious: Yes (Hospitalization)
  Sender: FDA-Public Use
  Company Number: US-JNJFOC-20231239406

PATIENT
  Sex: Male

DRUGS (17)
  1. INVEGA [Interacting]
     Active Substance: PALIPERIDONE
     Indication: Schizophrenia
     Dosage: UNK
     Route: 048
  2. INVEGA SUSTENNA [Interacting]
     Active Substance: PALIPERIDONE PALMITATE
     Indication: Schizophrenia
     Route: 030
  3. INVEGA SUSTENNA [Interacting]
     Active Substance: PALIPERIDONE PALMITATE
     Route: 030
  4. INVEGA SUSTENNA [Interacting]
     Active Substance: PALIPERIDONE PALMITATE
     Dosage: 250 MG-275 MG.
     Route: 030
  5. INVEGA TRINZA [Interacting]
     Active Substance: PALIPERIDONE PALMITATE
     Indication: Schizophrenia
     Dosage: UNK
     Route: 030
  6. INVEGA TRINZA [Interacting]
     Active Substance: PALIPERIDONE PALMITATE
  7. INVEGA TRINZA [Interacting]
     Active Substance: PALIPERIDONE PALMITATE
  8. INVEGA HAFYERA [Interacting]
     Active Substance: PALIPERIDONE PALMITATE
     Indication: Schizophrenia
     Dosage: UNK
     Route: 030
  9. INVEGA HAFYERA [Interacting]
     Active Substance: PALIPERIDONE PALMITATE
  10. COVID-19 VACCINE NOS [Suspect]
     Active Substance: COVID-19 VACCINE NOS
     Indication: Product used for unknown indication
     Route: 065
  11. LISINOPRIL [Concomitant]
     Active Substance: LISINOPRIL
  12. MORNIFLUMATE [Concomitant]
     Active Substance: MORNIFLUMATE
  13. ESCITALOPRAM [Concomitant]
     Active Substance: ESCITALOPRAM OXALATE
  14. ROPINIROLE [Concomitant]
     Active Substance: ROPINIROLE
  15. HYDROXYZINE [Concomitant]
     Active Substance: HYDROXYZINE HYDROCHLORIDE
  16. OLANZAPINE [Concomitant]
     Active Substance: OLANZAPINE
  17. ATORVASTATIN [Concomitant]
     Active Substance: ATORVASTATIN

REACTIONS (12)
  - Injection site reaction [Unknown]
  - Poor dental condition [Unknown]
  - Muscle twitching [Unknown]
  - Abdominal pain [Unknown]
  - Diarrhoea [Unknown]
  - Visual impairment [Unknown]
  - Depression [Unknown]
  - Anxiety [Unknown]
  - Drug interaction [Unknown]
  - Prostatic disorder [Unknown]
  - Gingivitis [Unknown]
  - Electrolyte depletion [Unknown]
